FAERS Safety Report 5823693-0 (Version None)
Quarter: 2008Q3

REPORT INFORMATION
  Report Type: 
  Country: None (occurrence: None)
  Receive Date: 20080725
  Receipt Date: 20080616
  Transmission Date: 20090109
  Serious: Yes (Other)
  Sender: FDA-Public Use
  Company Number: GB-PFIZER INC-2008050884

PATIENT
  Sex: Female

DRUGS (3)
  1. CHANTIX [Suspect]
     Route: 048
     Dates: start: 20080509, end: 20080529
  2. SYMBICORT [Concomitant]
  3. VENTOLIN [Concomitant]

REACTIONS (5)
  - DYSPNOEA [None]
  - INCORRECT DOSE ADMINISTERED [None]
  - MALAISE [None]
  - NAUSEA [None]
  - PANIC REACTION [None]
